FAERS Safety Report 4919983-6 (Version None)
Quarter: 2006Q1

REPORT INFORMATION
  Report Type: 
  Country: None (occurrence: None)
  Receive Date: 20060216
  Receipt Date: 20060207
  Transmission Date: 20060701
  Serious: Yes (Hospitalization)
  Sender: FDA-Public Use
  Company Number: 2006US000285

PATIENT
  Age: 30 Year
  Sex: Female

DRUGS (9)
  1. PROGRAF [Suspect]
     Indication: PROPHYLAXIS AGAINST TRANSPLANT REJECTION
     Dosage: 2 MG, BID, ORAL
     Route: 048
     Dates: start: 20050610, end: 20051122
  2. MYCOPHENOLATE MOFETIL (MYCOPHENOLATE MOFETIL) [Suspect]
     Indication: PROPHYLAXIS AGAINST TRANSPLANT REJECTION
     Dosage: 1000 MG, BID, ORAL
     Route: 048
     Dates: start: 20050610
  3. CORTICOSTEROIDS () [Suspect]
     Indication: PROPHYLAXIS AGAINST TRANSPLANT REJECTION
  4. BACTRIM [Concomitant]
  5. FERROUS SULFATE TAB [Concomitant]
  6. LIPITOR [Concomitant]
  7. PEPCID [Concomitant]
  8. VALCYTE [Concomitant]
  9. ZITHROMAX [Concomitant]

REACTIONS (1)
  - ENCEPHALITIS [None]
